FAERS Safety Report 20395066 (Version 1)
Quarter: 2022Q1

REPORT INFORMATION
  Report Type: Spontaneous
  Country: US (occurrence: US)
  Receive Date: 20220130
  Receipt Date: 20220130
  Transmission Date: 20220423
  Serious: No
  Sender: FDA-Public Use
  Company Number: US-PAIPHARMA-2021-US-013816

PATIENT
  Age: 61 Year
  Sex: Female
  Weight: 68.04 kg

DRUGS (5)
  1. NYSTATIN [Suspect]
     Active Substance: NYSTATIN
     Indication: Candida infection
     Dosage: 1 TEASPOON 4X DAILY ALTERNATING THE QUANTITY OF DOSES BETWEEN 2-4 AS NEEDED
     Route: 048
     Dates: start: 20210617
  2. Unspecified NSAID [Concomitant]
     Dosage: UNKNOWN
  3. UNSPECIFIED INGREDIENT [Concomitant]
     Active Substance: UNSPECIFIED INGREDIENT
     Dosage: UNKNOWN
  4. Compounded thyroid product [Concomitant]
     Dosage: UNKNOWN
  5. METHYLPREDNISOLONE [Concomitant]
     Active Substance: METHYLPREDNISOLONE
     Dosage: UNKNOWN

REACTIONS (4)
  - Abdominal distension [Unknown]
  - Gastrointestinal sounds abnormal [Unknown]
  - Diarrhoea [Unknown]
  - Tongue discomfort [Unknown]

NARRATIVE: CASE EVENT DATE: 20210617
